FAERS Safety Report 17862525 (Version 1)
Quarter: 2020Q2

REPORT INFORMATION
  Report Type: Report from Study
  Country: None (occurrence: BR)
  Receive Date: 20200605
  Receipt Date: 20200605
  Transmission Date: 20200714
  Serious: Yes (Death, Hospitalization, Other)
  Sender: FDA-Public Use
  Company Number: BR-ABBVIE-20K-020-3428927-00

PATIENT
  Age: 87 Year
  Sex: Female
  Weight: 40 kg

DRUGS (2)
  1. HUMIRA [Suspect]
     Active Substance: ADALIMUMAB
     Indication: UVEITIS
     Dosage: UNSPECIFIC DOSE
     Route: 058
     Dates: start: 20190408, end: 20200220
  2. ASPIRINA [Concomitant]
     Active Substance: ASPIRIN
     Indication: PRODUCT USED FOR UNKNOWN INDICATION

REACTIONS (15)
  - Blood disorder [Unknown]
  - Dehydration [Unknown]
  - Asthenia [Not Recovered/Not Resolved]
  - Poor personal hygiene [Recovered/Resolved]
  - Urinary tract infection [Not Recovered/Not Resolved]
  - Tooth deposit [Recovered/Resolved]
  - Swelling [Unknown]
  - Anaemia [Unknown]
  - Malaise [Not Recovered/Not Resolved]
  - Organ failure [Fatal]
  - Enteral nutrition [Unknown]
  - Noninfective gingivitis [Recovered/Resolved]
  - Aphasia [Unknown]
  - Procedural pain [Recovered/Resolved]
  - Eating disorder [Not Recovered/Not Resolved]

NARRATIVE: CASE EVENT DATE: 202002
